FAERS Safety Report 5507941-2 (Version None)
Quarter: 2007Q4

REPORT INFORMATION
  Report Type: 
  Country: None (occurrence: None)
  Receive Date: 20071106
  Receipt Date: 20071027
  Transmission Date: 20080405
  Serious: Yes (Other)
  Sender: FDA-Public Use
  Company Number: FR-WYE-H00920707

PATIENT
  Sex: Male
  Weight: 62 kg

DRUGS (3)
  1. EFFEXOR [Suspect]
     Indication: DEPRESSION
     Dosage: ^2 MORE OF EFFEXOR^ DOSE UNKNOWN
     Route: 048
     Dates: start: 20070823, end: 20070823
  2. ETHANOL [Suspect]
     Dosage: UNKNOWN
     Route: 048
     Dates: start: 20070823, end: 20070823
  3. LEXOMIL [Suspect]
     Indication: DEPRESSION
     Dosage: ^2 BLISTER PACKS OF LEXOMIL^
     Route: 048
     Dates: start: 20070823, end: 20070823

REACTIONS (6)
  - ABNORMAL BEHAVIOUR [None]
  - CONDITION AGGRAVATED [None]
  - DEPRESSION [None]
  - INTENTIONAL OVERDOSE [None]
  - MENTAL DISORDER [None]
  - SUICIDE ATTEMPT [None]
